FAERS Safety Report 18694345 (Version 2)
Quarter: 2021Q1

REPORT INFORMATION
  Report Type: Spontaneous
  Country: US (occurrence: US)
  Receive Date: 20210104
  Receipt Date: 20210225
  Transmission Date: 20210419
  Serious: No
  Sender: FDA-Public Use
  Company Number: US-ASTRAZENECA-2020SF72512

PATIENT
  Sex: Female

DRUGS (1)
  1. PULMICORT FLEXHALER [Suspect]
     Active Substance: BUDESONIDE
     Indication: ASTHMA
     Dosage: 180MCG 1 PUFF TWICE A DAY
     Route: 055

REACTIONS (4)
  - Device malfunction [Unknown]
  - Intentional device misuse [Unknown]
  - Asthma [Unknown]
  - Lung disorder [Unknown]
